FAERS Safety Report 13528363 (Version 2)
Quarter: 2017Q3

REPORT INFORMATION
  Report Type: Spontaneous
  Country: KR (occurrence: KR)
  Receive Date: 20170509
  Receipt Date: 20170727
  Transmission Date: 20171127
  Serious: Yes (Other)
  Sender: FDA-Public Use
  Company Number: KR-009507513-1705KOR004039

PATIENT
  Age: 31 Year
  Sex: Female
  Weight: 48.7 kg

DRUGS (21)
  1. EMEND (FOSAPREPITANT DIMEGLUMINE) [Suspect]
     Active Substance: FOSAPREPITANT DIMEGLUMINE
     Dosage: 150 MG, ONCE
     Route: 042
     Dates: start: 20170408, end: 20170408
  2. DEXAMETHASONE SODIUM PHOSPHATE. [Concomitant]
     Active Substance: DEXAMETHASONE SODIUM PHOSPHATE
     Indication: PREMEDICATION
     Dosage: STRENGTH: 5 MG/ML, 14 MG, ONCE
     Route: 042
     Dates: start: 20170225, end: 20170225
  3. EMEND (FOSAPREPITANT DIMEGLUMINE) [Suspect]
     Active Substance: FOSAPREPITANT DIMEGLUMINE
     Indication: PROPHYLAXIS OF NAUSEA AND VOMITING
     Dosage: 150 MG, ONCE
     Route: 042
     Dates: start: 20170225, end: 20170225
  4. EMEND (FOSAPREPITANT DIMEGLUMINE) [Suspect]
     Active Substance: FOSAPREPITANT DIMEGLUMINE
     Dosage: 150 MG, ONCE
     Route: 042
     Dates: start: 20170429, end: 20170429
  5. ADRIAMYCIN [Concomitant]
     Active Substance: DOXORUBICIN HYDROCHLORIDE
     Dosage: 89.4 MG, ONCE, CYCLE 2
     Route: 042
     Dates: start: 20170318, end: 20170318
  6. ADRIAMYCIN [Concomitant]
     Active Substance: DOXORUBICIN HYDROCHLORIDE
     Dosage: 89.4 MG, ONCE, CYCLE 4
     Route: 042
     Dates: start: 20170429, end: 20170429
  7. NASERON [Concomitant]
     Indication: PROPHYLAXIS OF NAUSEA AND VOMITING
     Dosage: 0.1 MG, QD
     Route: 048
     Dates: start: 20170225, end: 20170301
  8. ENDOXAN [Concomitant]
     Active Substance: CYCLOPHOSPHAMIDE
     Dosage: 882 MG, ONCE, CYCLE 3
     Route: 042
     Dates: start: 20170408, end: 20170408
  9. DEXAMETHASONE SODIUM PHOSPHATE. [Concomitant]
     Active Substance: DEXAMETHASONE SODIUM PHOSPHATE
     Dosage: STRENGTH: 5 MG/ML, 14 MG, ONCE
     Route: 042
     Dates: start: 20170429, end: 20170429
  10. NASERON [Concomitant]
     Dosage: 0.1 MG, ONCE
     Route: 048
     Dates: start: 20170429, end: 20170429
  11. TANTUM [Concomitant]
     Active Substance: BENZYDAMINE HYDROCHLORIDE
     Indication: PROPHYLAXIS
     Dosage: UNK UNK, PRN
     Route: 049
     Dates: start: 20170225
  12. ENDOXAN [Concomitant]
     Active Substance: CYCLOPHOSPHAMIDE
     Dosage: 894 MG, ONCE, CYCLE 4
     Route: 042
     Dates: start: 20170429, end: 20170429
  13. DEXAMETHASONE SODIUM PHOSPHATE. [Concomitant]
     Active Substance: DEXAMETHASONE SODIUM PHOSPHATE
     Dosage: STRENGTH: 5 MG/ML, 14 MG, ONCE
     Route: 042
     Dates: start: 20170318, end: 20170318
  14. NASERON [Concomitant]
     Dosage: 0.1 MG, ONCE
     Route: 048
     Dates: start: 20170318, end: 20170318
  15. NASERON [Concomitant]
     Dosage: 0.1 MG, ONCE
     Route: 048
     Dates: start: 20170408, end: 20170408
  16. EMEND (FOSAPREPITANT DIMEGLUMINE) [Suspect]
     Active Substance: FOSAPREPITANT DIMEGLUMINE
     Dosage: 150 MG, ONCE
     Route: 042
     Dates: start: 20170318, end: 20170318
  17. ENDOXAN [Concomitant]
     Active Substance: CYCLOPHOSPHAMIDE
     Indication: BREAST CANCER
     Dosage: 894 MG, ONCE, CYCLE 1
     Route: 042
     Dates: start: 20170225, end: 20170225
  18. ADRIAMYCIN [Concomitant]
     Active Substance: DOXORUBICIN HYDROCHLORIDE
     Indication: BREAST CANCER
     Dosage: 89.4 MG, ONCE, CYCLE 1
     Route: 042
     Dates: start: 20170225, end: 20170225
  19. ADRIAMYCIN [Concomitant]
     Active Substance: DOXORUBICIN HYDROCHLORIDE
     Dosage: 88.2 MG, ONCE, CYCLE 3
     Route: 042
     Dates: start: 20170408, end: 20170408
  20. ENDOXAN [Concomitant]
     Active Substance: CYCLOPHOSPHAMIDE
     Dosage: 894 MG, ONCE, CYCLE 2
     Route: 042
     Dates: start: 20170318, end: 20170318
  21. DEXAMETHASONE SODIUM PHOSPHATE. [Concomitant]
     Active Substance: DEXAMETHASONE SODIUM PHOSPHATE
     Dosage: STRENGTH: 5 MG/ML, 14 MG, ONCE
     Route: 042
     Dates: start: 20170408, end: 20170408

REACTIONS (4)
  - Anal fissure [Recovering/Resolving]
  - Nausea [Recovered/Resolved]
  - Pruritus [Recovered/Resolved]
  - Drug ineffective [Unknown]

NARRATIVE: CASE EVENT DATE: 2017
